FAERS Safety Report 6282756-9 (Version None)
Quarter: 2009Q3

REPORT INFORMATION
  Report Type: 
  Country: None (occurrence: None)
  Receive Date: 20090724
  Receipt Date: 20090715
  Transmission Date: 20100115
  Serious: Yes (Hospitalization)
  Sender: FDA-Public Use
  Company Number: JP-JNJFOC-20090701081

PATIENT
  Sex: Male
  Weight: 21 kg

DRUGS (3)
  1. RISPERDAL [Suspect]
     Indication: AGGRESSION
     Route: 048
  2. EXCEGRAN [Concomitant]
     Indication: EPILEPSY
     Route: 048
  3. MYSTAN [Concomitant]
     Indication: EPILEPSY
     Route: 048

REACTIONS (15)
  - ACCIDENTAL OVERDOSE [None]
  - ALTERED STATE OF CONSCIOUSNESS [None]
  - CRYING [None]
  - DEPRESSED LEVEL OF CONSCIOUSNESS [None]
  - DRUG PRESCRIBING ERROR [None]
  - EYE DISCHARGE [None]
  - FEELING ABNORMAL [None]
  - GAIT DISTURBANCE [None]
  - HYPERSOMNIA [None]
  - HYPOAESTHESIA [None]
  - HYPOKINESIA [None]
  - MOTOR DYSFUNCTION [None]
  - PYREXIA [None]
  - TACHYCARDIA [None]
  - TREMOR [None]
